FAERS Safety Report 15473495 (Version 2)
Quarter: 2018Q4

REPORT INFORMATION
  Report Type: Spontaneous
  Country: TW (occurrence: TW)
  Receive Date: 20181008
  Receipt Date: 20181015
  Transmission Date: 20190205
  Serious: Yes (Other)
  Sender: FDA-Public Use
  Company Number: TW-PFIZER INC-2018397955

PATIENT
  Age: 69 Year
  Sex: Female

DRUGS (2)
  1. IBRANCE [Suspect]
     Active Substance: PALBOCICLIB
     Indication: BREAST CANCER
     Dosage: 125 MG, UNK
     Route: 048
     Dates: start: 20180515
  2. LETROZOLE. [Concomitant]
     Active Substance: LETROZOLE
     Indication: BREAST CANCER
     Dosage: UNK
     Dates: start: 20180515

REACTIONS (9)
  - Arthralgia [Unknown]
  - Vertigo [Unknown]
  - Constipation [Unknown]
  - Abdominal distension [Unknown]
  - Back pain [Unknown]
  - Spinal compression fracture [Unknown]
  - Folliculitis [Unknown]
  - Haemorrhoids [Unknown]
  - Tremor [Unknown]

NARRATIVE: CASE EVENT DATE: 2018
